FAERS Safety Report 21853955 (Version 3)
Quarter: 2023Q2

REPORT INFORMATION
  Report Type: Report from Study
  Country: US (occurrence: US)
  Receive Date: 20230112
  Receipt Date: 20230424
  Transmission Date: 20230721
  Serious: Yes (Other)
  Sender: FDA-Public Use
  Company Number: US-002147023-NVSC2023US006416

PATIENT
  Age: 56 Year
  Sex: Male

DRUGS (2)
  1. ENTRESTO [Suspect]
     Active Substance: SACUBITRIL\VALSARTAN
     Indication: Ischaemic cardiomyopathy
     Dosage: 1 DOSAGE FORM, BID
     Route: 048
     Dates: start: 20220728
  2. ENTRESTO [Suspect]
     Active Substance: SACUBITRIL\VALSARTAN
     Dosage: 1 DOSAGE FORM, BID
     Route: 048

REACTIONS (4)
  - Diabetes mellitus [Not Recovered/Not Resolved]
  - Weight decreased [Unknown]
  - Blood pressure decreased [Unknown]
  - Product use in unapproved indication [Unknown]

NARRATIVE: CASE EVENT DATE: 20220728
